FAERS Safety Report 8537716-1 (Version None)
Quarter: 2012Q3

REPORT INFORMATION
  Report Type: 
  Country: None (occurrence: None)
  Receive Date: 20120725
  Receipt Date: 20120717
  Transmission Date: 20120928
  Serious: Yes (Other)
  Sender: FDA-Public Use
  Company Number: PHHY2012BR063242

PATIENT
  Sex: Female

DRUGS (2)
  1. SIMVASTATIN [Suspect]
     Indication: BLOOD CHOLESTEROL INCREASED
     Dosage: 2 DF, UNK
     Route: 048
     Dates: start: 20120501
  2. ATENOLOL [Concomitant]

REACTIONS (5)
  - ARTHRALGIA [None]
  - BRONCHITIS [None]
  - DYSPNOEA [None]
  - FATIGUE [None]
  - FALL [None]
